FAERS Safety Report 19539223 (Version 3)
Quarter: 2022Q3

REPORT INFORMATION
  Report Type: Spontaneous
  Country: FR (occurrence: FR)
  Receive Date: 20210714
  Receipt Date: 20220716
  Transmission Date: 20221027
  Serious: Yes (Hospitalization)
  Sender: FDA-Public Use
  Company Number: FR-AFSSAPS-SE20211649

PATIENT
  Age: 37 Year
  Sex: Female

DRUGS (5)
  1. NAPROXEN [Interacting]
     Active Substance: NAPROXEN
     Indication: Influenza like illness
     Dosage: UNK
     Route: 048
     Dates: start: 20210620, end: 20210620
  2. NAPROXEN [Interacting]
     Active Substance: NAPROXEN
     Dosage: UNK
     Route: 048
     Dates: start: 20210623, end: 20210626
  3. FLUOXETINE HYDROCHLORIDE [Interacting]
     Active Substance: FLUOXETINE HYDROCHLORIDE
     Indication: Depression
     Dosage: 20 MILLIGRAM, ONCE A DAY
     Route: 048
     Dates: start: 202102, end: 20210628
  4. PROZAC [Interacting]
     Active Substance: FLUOXETINE HYDROCHLORIDE
     Indication: Depression
     Dosage: 20 MILLIGRAM, ONCE A DAY
     Route: 048
     Dates: start: 202102, end: 20210628
  5. SPIKEVAX [Suspect]
     Active Substance: ELASOMERAN
     Indication: COVID-19 immunisation
     Dosage: UNK
     Route: 030
     Dates: start: 20210610, end: 20210610

REACTIONS (2)
  - Spontaneous haematoma [Not Recovered/Not Resolved]
  - Haematoma [Recovered/Resolved]

NARRATIVE: CASE EVENT DATE: 20210623
